FAERS Safety Report 22170229 (Version 1)
Quarter: 2023Q2

REPORT INFORMATION
  Report Type: Spontaneous
  Country: FR (occurrence: FR)
  Receive Date: 20230404
  Receipt Date: 20230404
  Transmission Date: 20230721
  Serious: Yes (Hospitalization)
  Sender: FDA-Public Use
  Company Number: FR-SA-SAC20230310001416

PATIENT
  Age: 50 Year
  Sex: Male
  Weight: 84 kg

DRUGS (6)
  1. ALPRAZOLAM [Suspect]
     Active Substance: ALPRAZOLAM
     Indication: Middle insomnia
     Dosage: UNK
     Route: 065
  2. HYDROCORTISONE [Suspect]
     Active Substance: HYDROCORTISONE
     Indication: Product used for unknown indication
     Dosage: UNK
     Route: 065
  3. REVAXIS [Suspect]
     Active Substance: DIPHTHERIA AND TETANUS TOXOIDS AND POLIOVIRUS VACCINE ANTIGENS
     Indication: Immunisation
     Dosage: UNK
     Route: 065
     Dates: start: 20140421
  4. ESCITALOPRAM OXALATE [Suspect]
     Active Substance: ESCITALOPRAM OXALATE
     Indication: Product used for unknown indication
     Dosage: UNK
     Route: 065
  5. VALDOXAN [Suspect]
     Active Substance: AGOMELATINE
     Indication: Product used for unknown indication
     Dosage: 1 DOSAGE FORM, ONCE A DAY, (1 DF, QD)
     Route: 065
  6. TEGRETOL [Concomitant]
     Active Substance: CARBAMAZEPINE
     Indication: Product used for unknown indication
     Dosage: UNK
     Route: 065

REACTIONS (8)
  - Neuralgia [Unknown]
  - Asthenia [Unknown]
  - Paraesthesia [Unknown]
  - Weight increased [Unknown]
  - Anhedonia [Unknown]
  - Palpitations [Unknown]
  - Myalgia [Unknown]
  - Chronic fatigue syndrome [Unknown]
